FAERS Safety Report 4503450-8 (Version None)
Quarter: 2004Q4

REPORT INFORMATION
  Report Type: 
  Country: None (occurrence: None)
  Receive Date: 20041112
  Receipt Date: 20041104
  Transmission Date: 20050328
  Serious: Yes (Other)
  Sender: FDA-Public Use
  Company Number: 2004-11-0265

PATIENT
  Sex: Female

DRUGS (2)
  1. INTRON A [Suspect]
     Indication: MYELOPROLIFERATIVE DISORDER
     Dosage: SEE IMAGE
     Route: 058
  2. INTRON A [Suspect]
     Indication: THROMBOCYTHAEMIA
     Dosage: SEE IMAGE
     Route: 058

REACTIONS (1)
  - ENCEPHALOPATHY [None]
